FAERS Safety Report 8045065-3 (Version None)
Quarter: 2012Q1

REPORT INFORMATION
  Report Type: 
  Country: None (occurrence: None)
  Receive Date: 20120113
  Receipt Date: 20111229
  Transmission Date: 20120608
  Serious: Yes (Hospitalization)
  Sender: FDA-Public Use
  Company Number: PHEH2011US012723

PATIENT
  Age: 58 Year
  Sex: Female

DRUGS (2)
  1. GILENYA [Suspect]
     Dosage: UNK UKN, UNK
  2. MULTIHANCE [Concomitant]
     Dosage: 20 ML, UNK
     Route: 042

REACTIONS (5)
  - CONVULSION [None]
  - CENTRAL NERVOUS SYSTEM LESION [None]
  - MENTAL STATUS CHANGES [None]
  - HYPERTENSION [None]
  - POSTERIOR REVERSIBLE ENCEPHALOPATHY SYNDROME [None]
